FAERS Safety Report 8461687-X (Version None)
Quarter: 2012Q2

REPORT INFORMATION
  Report Type: 
  Country: None (occurrence: None)
  Receive Date: 20120625
  Receipt Date: 20120613
  Transmission Date: 20120825
  Serious: Yes (Hospitalization)
  Sender: FDA-Public Use
  Company Number: US-VERTEX PHARMACEUTICALS INC.-AE-2012-008793

PATIENT
  Sex: Female

DRUGS (2)
  1. KALYDECO [Suspect]
     Indication: CYSTIC FIBROSIS
     Route: 048
     Dates: start: 20120224
  2. AMITRIPTYLINE HCL [Concomitant]
     Indication: MIGRAINE

REACTIONS (2)
  - DRUG INTERACTION [None]
  - LUNG INFECTION [None]
